FAERS Safety Report 9862065 (Version 2)
Quarter: 2014Q1

REPORT INFORMATION
  Report Type: Spontaneous
  Country: DE (occurrence: DE)
  Receive Date: 20140203
  Receipt Date: 20140221
  Transmission Date: 20141002
  Serious: Yes (Hospitalization)
  Sender: FDA-Public Use
  Company Number: DE-AMGEN-DEUSP2014006903

PATIENT
  Sex: 0

DRUGS (13)
  1. NEULASTA [Suspect]
     Indication: PROPHYLAXIS
     Dosage: 6 MG, DAILY
     Route: 058
     Dates: start: 20140118
  2. ADRIAMYCIN /00330901/ [Suspect]
     Indication: HODGKIN^S DISEASE
     Dosage: 35 MG/M2, UNK
     Route: 065
     Dates: start: 20140115
  3. BLEOMYCIN [Suspect]
     Indication: HODGKIN^S DISEASE
     Dosage: 10 MG/M2, UNK
     Route: 065
     Dates: start: 20140122
  4. PROCARBAZINE [Suspect]
     Indication: HODGKIN^S DISEASE
     Dosage: 100 MG/M2, UNK
     Route: 065
     Dates: start: 20140115
  5. VINCRISTINE [Suspect]
     Indication: HODGKIN^S DISEASE
     Dosage: 44 MG/M2, UNK
     Route: 065
     Dates: start: 20140122
  6. ETOPOSIDE [Suspect]
     Indication: HODGKIN^S DISEASE
     Dosage: 200 MG/M2, UNK
     Route: 065
     Dates: start: 20140115
  7. CYCLOPHOSPHAMIDE [Suspect]
     Indication: HODGKIN^S DISEASE
     Dosage: 1250 MG/M2, UNK
     Route: 065
     Dates: start: 20140115
  8. PREDNISONE [Suspect]
     Indication: HODGKIN^S DISEASE
     Dosage: 40 MG/M2, UNK
     Route: 065
     Dates: start: 20140115
  9. COTRIM FORTE [Concomitant]
     Dosage: 960 MUG, UNK
     Dates: start: 20140119
  10. CIPROFLOXACIN [Concomitant]
     Dosage: 1000 MG, UNK
     Dates: start: 20140119
  11. PANTOZOL                           /01263204/ [Concomitant]
     Dosage: 80 MG, UNK
     Dates: start: 20140116
  12. METOCLOPRAMIDE [Concomitant]
     Dosage: 90 TIO, UNK
     Dates: start: 20140116
  13. PARACODEINE [Concomitant]
     Dosage: 60 TIO, UNK
     Dates: start: 20140116

REACTIONS (1)
  - General physical health deterioration [Recovered/Resolved]
